FAERS Safety Report 23257130 (Version 1)
Quarter: 2023Q4

REPORT INFORMATION
  Report Type: Spontaneous
  Country: US (occurrence: US)
  Receive Date: 20231204
  Receipt Date: 20231204
  Transmission Date: 20240110
  Serious: No
  Sender: FDA-Public Use
  Company Number: US-ELI_LILLY_AND_COMPANY-US202312000424

PATIENT
  Sex: Male

DRUGS (1)
  1. MOUNJARO [Suspect]
     Active Substance: TIRZEPATIDE
     Indication: Product used for unknown indication
     Dosage: UNK UNK, WEEKLY (1/W)
     Route: 065
     Dates: start: 202310

REACTIONS (5)
  - Sleep disorder due to a general medical condition [Recovering/Resolving]
  - Gastric pH decreased [Recovering/Resolving]
  - Asthenia [Recovering/Resolving]
  - Eructation [Recovering/Resolving]
  - Decreased appetite [Recovering/Resolving]
